FAERS Safety Report 6018560-6 (Version None)
Quarter: 2008Q4

REPORT INFORMATION
  Report Type: 
  Country: None (occurrence: None)
  Receive Date: 20081223
  Receipt Date: 20081209
  Transmission Date: 20090506
  Serious: No
  Sender: FDA-Public Use
  Company Number: US-B.I. PHARMACEUTICALS,INC./RIDGEFIELD-2008-BP-11473BP

PATIENT
  Sex: Male

DRUGS (5)
  1. COMBIVENT [Suspect]
     Indication: CHRONIC OBSTRUCTIVE PULMONARY DISEASE
     Route: 055
     Dates: start: 20060802
  2. ADVAIR DISKUS 250/50 [Concomitant]
     Dosage: 2PUF
     Dates: start: 20060802
  3. OMEPRAZOLE [Concomitant]
     Dosage: 20MG
     Dates: start: 20060802
  4. ATENOLOL [Concomitant]
     Dosage: 100MG
     Dates: start: 20060802
  5. LISINOPRIL [Concomitant]
     Dosage: 20MG
     Dates: start: 20060802

REACTIONS (2)
  - DRUG INEFFECTIVE [None]
  - DYSGEUSIA [None]
